FAERS Safety Report 12507368 (Version 2)
Quarter: 2016Q3

REPORT INFORMATION
  Report Type: Spontaneous
  Country: US (occurrence: US)
  Receive Date: 20160629
  Receipt Date: 20160831
  Transmission Date: 20161109
  Serious: Yes (Other)
  Sender: FDA-Public Use
  Company Number: US-AUROBINDO-AUR-APU-2016-08084

PATIENT
  Sex: Female

DRUGS (1)
  1. RALOXIFENE HYDROCHLORIDE TABLETS USP 60MG [Suspect]
     Active Substance: RALOXIFENE HYDROCHLORIDE
     Indication: OSTEOPOROSIS
     Route: 065

REACTIONS (1)
  - Blood potassium increased [Unknown]
